FAERS Safety Report 8429998-1 (Version None)
Quarter: 2012Q2

REPORT INFORMATION
  Report Type: 
  Country: None (occurrence: None)
  Receive Date: 20120612
  Receipt Date: 20120530
  Transmission Date: 20120825
  Serious: Yes (Hospitalization)
  Sender: FDA-Public Use
  Company Number: GB-ROCHE-1054479

PATIENT
  Sex: Male
  Weight: 81 kg

DRUGS (16)
  1. ACETAMINOPHEN [Concomitant]
     Indication: INFLUENZA LIKE ILLNESS
     Route: 048
     Dates: start: 20120120
  2. CITALOPRAM [Concomitant]
     Indication: INSOMNIA
  3. BI 201335 (HCV PROTEASE INHIBITOR) [Suspect]
     Indication: HIV INFECTION
  4. TRUVADA [Concomitant]
     Indication: HIV INFECTION
     Dosage: 1 ANZ
     Route: 048
     Dates: start: 20111102
  5. BI 201335 (HCV PROTEASE INHIBITOR) [Suspect]
     Indication: HEPATITIS C
     Route: 048
     Dates: start: 20120111, end: 20120314
  6. PEGASYS [Suspect]
     Indication: HEPATITIS C
     Route: 058
     Dates: start: 20120111, end: 20120307
  7. NYSTATIN [Concomitant]
     Indication: OROPHARYNGEAL PAIN
     Dosage: 6 DROPS
     Route: 048
     Dates: start: 20120307
  8. CITALOPRAM [Concomitant]
     Indication: DEPRESSED MOOD
     Route: 048
     Dates: start: 20120307
  9. METRONIDAZOLE [Concomitant]
     Indication: OROPHARYNGEAL PAIN
     Route: 048
     Dates: start: 20120313
  10. COPEGUS [Suspect]
     Indication: HIV INFECTION
     Route: 048
     Dates: start: 20120313, end: 20120314
  11. RALTEGRAVIR [Concomitant]
     Indication: HIV INFECTION
     Route: 048
     Dates: start: 20111102
  12. PEGASYS [Suspect]
     Indication: HIV INFECTION
     Route: 058
     Dates: start: 20120313, end: 20120314
  13. ACYCLOVIR [Concomitant]
     Indication: PROPHYLAXIS
     Route: 048
  14. CIPROFLOXACIN [Concomitant]
     Indication: OROPHARYNGEAL PAIN
     Route: 048
     Dates: start: 20120307, end: 20120311
  15. FORTISIP [Concomitant]
     Indication: DECREASED APPETITE
     Dosage: 1-2 CARTONS
     Route: 048
     Dates: start: 20120301
  16. COPEGUS [Suspect]
     Indication: HEPATITIS C
     Route: 048
     Dates: start: 20120111

REACTIONS (11)
  - PYREXIA [None]
  - SARCOIDOSIS [None]
  - VOMITING [None]
  - PNEUMONIA [None]
  - PULMONARY TUBERCULOSIS [None]
  - WHITE BLOOD CELL ANALYSIS [None]
  - DIARRHOEA [None]
  - LYMPHOMA [None]
  - DYSPNOEA [None]
  - DECREASED APPETITE [None]
  - DRUG RASH WITH EOSINOPHILIA AND SYSTEMIC SYMPTOMS [None]
